FAERS Safety Report 25517795 (Version 3)
Quarter: 2025Q3

REPORT INFORMATION
  Report Type: Spontaneous
  Country: US (occurrence: US)
  Receive Date: 20250704
  Receipt Date: 20250925
  Transmission Date: 20251021
  Serious: Yes (Other)
  Sender: ALEXION PHARMACEUTICALS
  Company Number: US-AstraZeneca-CH-00898169A

PATIENT
  Age: 49 Year
  Sex: Female
  Weight: 99.8 kg

DRUGS (5)
  1. LYNPARZA [Suspect]
     Active Substance: OLAPARIB
     Indication: Endometrial adenocarcinoma
     Dosage: 300 MILLIGRAM, BID
     Dates: start: 202402
  2. VITAMINS [Concomitant]
     Active Substance: VITAMINS
     Route: 065
  3. PERCOCET [Concomitant]
     Active Substance: ACETAMINOPHEN\OXYCODONE HYDROCHLORIDE
     Route: 065
  4. PROPRANOLOL [Concomitant]
     Active Substance: PROPRANOLOL HYDROCHLORIDE
     Route: 065
     Dates: start: 20250425, end: 20250425
  5. TIRZEPATIDE [Concomitant]
     Active Substance: TIRZEPATIDE
     Route: 065

REACTIONS (19)
  - Cutaneous vasculitis [Unknown]
  - Mastectomy [Unknown]
  - Rash [Unknown]
  - Stress [Unknown]
  - Eating disorder [Unknown]
  - Muscle spasms [Unknown]
  - Aspartate aminotransferase increased [Unknown]
  - Full blood count abnormal [Unknown]
  - Metabolic function test abnormal [Unknown]
  - Red blood cell abnormality [Unknown]
  - Mean cell volume abnormal [Unknown]
  - Mean cell haemoglobin normal [Unknown]
  - Red cell distribution width increased [Unknown]
  - Haematocrit abnormal [Unknown]
  - Mean cell volume abnormal [Unknown]
  - Mean cell haemoglobin [Unknown]
  - Blood glucose abnormal [Unknown]
  - Aspartate aminotransferase increased [Unknown]
  - Alanine aminotransferase increased [Unknown]

NARRATIVE: CASE EVENT DATE: 20250101
